FAERS Safety Report 24874235 (Version 2)
Quarter: 2025Q1

REPORT INFORMATION
  Report Type: Spontaneous
  Country: AU (occurrence: AU)
  Receive Date: 20250122
  Receipt Date: 20250225
  Transmission Date: 20250408
  Serious: No
  Sender: TOLMAR
  Company Number: AU-TOLMAR, INC.-24AU055197

PATIENT

DRUGS (1)
  1. ELIGARD [Suspect]
     Active Substance: LEUPROLIDE ACETATE
     Indication: Product used for unknown indication
     Route: 058
     Dates: start: 20241223

REACTIONS (2)
  - Intercepted product preparation error [Unknown]
  - Product contamination physical [Unknown]

NARRATIVE: CASE EVENT DATE: 20241223
